FAERS Safety Report 4595762-7 (Version None)
Quarter: 2005Q1

REPORT INFORMATION
  Report Type: 
  Country: None (occurrence: None)
  Receive Date: 20050224
  Receipt Date: 20050214
  Transmission Date: 20050727
  Serious: Yes (Hospitalization)
  Sender: FDA-Public Use
  Company Number: 2005029930

PATIENT
  Age: 58 Year
  Sex: Male

DRUGS (3)
  1. RIFABUTIN PHARMACIA (RIFABUTIN) [Suspect]
     Indication: PULMONARY TUBERCULOSIS
     Dosage: 2 DOSES FORM, ORAL
     Route: 048
     Dates: start: 20041231
  2. CLARITHROMYCIN [Suspect]
     Indication: PULMONARY TUBERCULOSIS
     Dosage: 3 DOSES FORM, ORAL
     Route: 048
     Dates: start: 20041230
  3. ETHAMBUTOL HCL [Suspect]
     Indication: PULMONARY TUBERCULOSIS
     Dosage: 2.5 DOSE FORM, ORAL
     Route: 048
     Dates: start: 20040925, end: 20050104

REACTIONS (1)
  - OPTIC NEURITIS [None]
